FAERS Safety Report 26082874 (Version 1)
Quarter: 2025Q4

REPORT INFORMATION
  Report Type: Report from Study
  Country: PH (occurrence: PH)
  Receive Date: 20251124
  Receipt Date: 20251124
  Transmission Date: 20260118
  Serious: Yes (Death)
  Sender: OTSUKA
  Company Number: PH-MMM-Otsuka-15ROTZC6

PATIENT

DRUGS (1)
  1. TOLVAPTAN [Suspect]
     Active Substance: TOLVAPTAN
     Indication: Product used for unknown indication
     Dosage: 0.5 DF, BID (15 MG HALF TABLET TWICE A DAY)
     Dates: end: 20251105

REACTIONS (8)
  - Pulmonary congestion [Fatal]
  - Cardiorenal syndrome [Fatal]
  - Sepsis associated acute kidney injury [Fatal]
  - Cardiac failure [Fatal]
  - Acute kidney injury [Fatal]
  - Wrong technique in product usage process [Unknown]
  - Inappropriate schedule of product administration [Unknown]
  - Product prescribing issue [Unknown]
